FAERS Safety Report 11243707 (Version 1)
Quarter: 2015Q3

REPORT INFORMATION
  Report Type: Spontaneous
  Country: US (occurrence: US)
  Receive Date: 20150707
  Receipt Date: 20150707
  Transmission Date: 20151125
  Serious: No
  Sender: FDA-Public Use
  Company Number: US-DSJP-DSU-2014-125409

PATIENT
  Age: 41 Year
  Sex: Female

DRUGS (2)
  1. WELCHOL [Suspect]
     Active Substance: COLESEVELAM HYDROCHLORIDE
     Indication: POST PROCEDURAL BILE LEAK
     Dosage: 1875 MG, BID
     Route: 048
     Dates: start: 201406
  2. UNKNOWN THYROID MEDICATION [Interacting]
     Active Substance: UNSPECIFIED INGREDIENT
     Indication: THYROID DISORDER
     Dosage: UNK, QAM
     Route: 048

REACTIONS (3)
  - Off label use [Not Recovered/Not Resolved]
  - Thyroid disorder [Recovering/Resolving]
  - Drug interaction [Recovering/Resolving]

NARRATIVE: CASE EVENT DATE: 201406
